FAERS Safety Report 16089515 (Version 1)
Quarter: 2019Q1

REPORT INFORMATION
  Report Type: Spontaneous
  Country: US (occurrence: US)
  Receive Date: 20190215
  Receipt Date: 20190215
  Transmission Date: 20190418
  Serious: Yes (Other)
  Sender: FDA-Public Use
  Company Number: None

PATIENT
  Age: 63 Year
  Sex: Female

DRUGS (1)
  1. IBRANCE [Suspect]
     Active Substance: PALBOCICLIB
     Dates: start: 20161005

REACTIONS (3)
  - Tongue blistering [None]
  - Oral mucosal blistering [None]
  - Lacrimation increased [None]

NARRATIVE: CASE EVENT DATE: 20181225
